FAERS Safety Report 5502719-8 (Version None)
Quarter: 2007Q4

REPORT INFORMATION
  Report Type: 
  Country: None (occurrence: None)
  Receive Date: 20071029
  Receipt Date: 20071023
  Transmission Date: 20080405
  Serious: Yes (Hospitalization)
  Sender: FDA-Public Use
  Company Number: 2007SP020584

PATIENT
  Age: 60 Year
  Sex: Female
  Weight: 81.8 kg

DRUGS (5)
  1. TEMODAR [Suspect]
     Indication: GLIOBLASTOMA MULTIFORME
     Dosage: 150 MG;QD; PO
     Route: 048
     Dates: start: 20070919
  2. DECADRON [Concomitant]
  3. PREVACID [Concomitant]
  4. ANZEMET [Concomitant]
  5. BACTRIM DS [Concomitant]

REACTIONS (2)
  - DEEP VEIN THROMBOSIS [None]
  - VENOUS THROMBOSIS LIMB [None]
